FAERS Safety Report 6620242-4 (Version None)
Quarter: 2010Q1

REPORT INFORMATION
  Report Type: 
  Country: None (occurrence: None)
  Receive Date: 20100308
  Receipt Date: 20100308
  Transmission Date: 20100710
  Serious: Yes (Life-Threatening, Hospitalization)
  Sender: FDA-Public Use
  Company Number: None

PATIENT
  Age: 55 Year
  Sex: Male
  Weight: 110 kg

DRUGS (2)
  1. HEPARIN [Suspect]
     Indication: THROMBOSIS PROPHYLAXIS
     Dosage: 5000 UNITS TID SQ
     Route: 058
     Dates: start: 20100102, end: 20100108
  2. DEXTROSE/HEPARIN [Suspect]
     Dosage: 2000 UNITS PER HOUR IV
     Route: 042
     Dates: start: 20100108, end: 20100109

REACTIONS (1)
  - HEPARIN-INDUCED THROMBOCYTOPENIA [None]
